FAERS Safety Report 23933269 (Version 2)
Quarter: 2024Q2

REPORT INFORMATION
  Report Type: Spontaneous
  Country: US (occurrence: US)
  Receive Date: 20240603
  Receipt Date: 20240604
  Transmission Date: 20240716
  Serious: No
  Sender: FDA-Public Use
  Company Number: US-PFIZER INC-202400181863

PATIENT
  Sex: Female

DRUGS (1)
  1. DEPO-PROVERA [Suspect]
     Active Substance: MEDROXYPROGESTERONE ACETATE
     Dosage: UNK
     Dates: start: 20240129

REACTIONS (6)
  - Feeling abnormal [Unknown]
  - Dizziness [Unknown]
  - Asthenia [Unknown]
  - Malaise [Unknown]
  - Lethargy [Unknown]
  - Limb discomfort [Unknown]

NARRATIVE: CASE EVENT DATE: 20240101
